FAERS Safety Report 7628405-6 (Version None)
Quarter: 2011Q3

REPORT INFORMATION
  Report Type: 
  Country: None (occurrence: None)
  Receive Date: 20110722
  Receipt Date: 20110713
  Transmission Date: 20111222
  Serious: No
  Sender: FDA-Public Use
  Company Number: US-PFIZER INC-2011158895

PATIENT
  Sex: Female
  Weight: 61.2 kg

DRUGS (1)
  1. PREMARIN [Suspect]
     Indication: VAGINAL DISORDER
     Dosage: 2 TO 3 TIMES A WEEK
     Route: 067
     Dates: end: 20110601

REACTIONS (2)
  - APPLICATION SITE BLEEDING [None]
  - APPLICATION SITE PAIN [None]
